FAERS Safety Report 11159134 (Version 1)
Quarter: 2015Q2

REPORT INFORMATION
  Report Type: Spontaneous
  Country: GB (occurrence: GB)
  Receive Date: 20150603
  Receipt Date: 20150603
  Transmission Date: 20150821
  Serious: Yes (Disabling)
  Sender: FDA-Public Use
  Company Number: GB-TEVA-560622ISR

PATIENT
  Age: 71 Year
  Sex: Female
  Weight: 65.38 kg

DRUGS (11)
  1. OMEGA 3 [Concomitant]
     Active Substance: OMEGA-3 FATTY ACIDS
     Dosage: 3,6,9
  2. OMEGA-6 [Concomitant]
  3. GLUCOSAMINE AND CHONDROITIN [Concomitant]
  4. RAMIPRIL. [Concomitant]
     Active Substance: RAMIPRIL
     Indication: BLOOD PRESSURE
     Dosage: 2.5 MILLIGRAM DAILY;
     Dates: end: 201502
  5. AMITRIPTYLINE [Suspect]
     Active Substance: AMITRIPTYLINE
     Indication: ESSENTIAL TREMOR
     Dosage: 25 MILLIGRAM DAILY;
     Route: 065
     Dates: start: 2003, end: 20150404
  6. NORTRIPTYLINE [Suspect]
     Active Substance: NORTRIPTYLINE
     Route: 065
  7. LEVOTHYROXINE [Concomitant]
     Active Substance: LEVOTHYROXINE
     Indication: THYROID DISORDER
     Dosage: 25 MICROGRAM DAILY;
     Dates: start: 2004
  8. RETINEX [Concomitant]
     Indication: MACULAR DEGENERATION
  9. CALCICHEW DC [Concomitant]
     Dosage: 535.7143 UNKNOWN DAILY;
     Dates: start: 2003
  10. MULTIVITAMINS [Concomitant]
     Active Substance: VITAMINS
  11. OMEGA 9 [Concomitant]

REACTIONS (7)
  - Malaise [Recovered/Resolved]
  - Diarrhoea [Recovered/Resolved]
  - Dysgeusia [Recovered/Resolved]
  - Oral mucosal blistering [Unknown]
  - Abdominal discomfort [Recovered/Resolved]
  - Malaise [Recovered/Resolved]
  - Abdominal pain [Recovered/Resolved]

NARRATIVE: CASE EVENT DATE: 201412
